FAERS Safety Report 19702509 (Version 1)
Quarter: 2021Q3

REPORT INFORMATION
  Report Type: Report from Study
  Country: MX (occurrence: MX)
  Receive Date: 20210815
  Receipt Date: 20210815
  Transmission Date: 20211014
  Serious: Yes (Other)
  Sender: FDA-Public Use
  Company Number: MX-UCBSA-2021038069

PATIENT
  Sex: Female
  Weight: 90 kg

DRUGS (2)
  1. QUETIAPINE. [Concomitant]
     Active Substance: QUETIAPINE
     Indication: LOSS OF CONSCIOUSNESS
     Dosage: 12.5 MILLIGRAM, ONCE DAILY (QD)
     Route: 048
     Dates: start: 2021
  2. LACOSAMIDE. [Suspect]
     Active Substance: LACOSAMIDE
     Indication: EPILEPSY
     Dosage: 100 MILLIGRAM, 2X/DAY (BID)
     Route: 048
     Dates: start: 202107

REACTIONS (2)
  - Blister infected [Unknown]
  - Limb discomfort [Unknown]
